FAERS Safety Report 7400900-4 (Version None)
Quarter: 2011Q1

REPORT INFORMATION
  Report Type: 
  Country: None (occurrence: None)
  Receive Date: 20110329
  Receipt Date: 20110314
  Transmission Date: 20110831
  Serious: Yes (Other)
  Sender: FDA-Public Use
  Company Number: 023469

PATIENT
  Sex: Female
  Weight: 80 kg

DRUGS (6)
  1. CERTOLIZUMAB PEGOL [Suspect]
     Indication: CROHN'S DISEASE
     Dosage: 400 MG, 1X/MONTH, SUBCUTANEOUS
     Route: 058
     Dates: start: 20091010
  2. CALCIUM W/VITAMIN D [Concomitant]
  3. PENTASA [Concomitant]
  4. LISINOPRIL [Concomitant]
  5. MESALAMINE [Concomitant]
  6. CERTOLIZUMAB PEGOL [Suspect]

REACTIONS (10)
  - DIARRHOEA [None]
  - INCISIONAL HERNIA [None]
  - FATIGUE [None]
  - ENTEROCUTANEOUS FISTULA [None]
  - PROCEDURAL PAIN [None]
  - NASOPHARYNGITIS [None]
  - FREQUENT BOWEL MOVEMENTS [None]
  - STRESS [None]
  - SLEEP DISORDER [None]
  - FEELING ABNORMAL [None]
